FAERS Safety Report 7447117-5 (Version None)
Quarter: 2011Q2

REPORT INFORMATION
  Report Type: 
  Country: None (occurrence: None)
  Receive Date: 20110429
  Receipt Date: 20110418
  Transmission Date: 20111010
  Serious: Yes (Other)
  Sender: FDA-Public Use
  Company Number: US-ELI_LILLY_AND_COMPANY-US200909004679

PATIENT
  Sex: Female
  Weight: 69.388 kg

DRUGS (16)
  1. MYLANTA [Concomitant]
  2. PEPCID AC [Concomitant]
  3. SIMVASTATIN [Concomitant]
  4. AMBIEN [Concomitant]
     Dosage: UNK, PRN
  5. CALCIUM [Concomitant]
  6. OMEPRAZOLE [Concomitant]
  7. FORTEO [Suspect]
     Indication: OSTEOPOROSIS
     Dosage: 20 UG, DAILY (1/D)
     Route: 065
     Dates: start: 20090824
  8. FORTEO [Suspect]
     Dosage: 20 UG, QD
     Route: 065
  9. NEXIUM [Concomitant]
     Indication: GASTROOESOPHAGEAL REFLUX DISEASE
  10. FORTEO [Suspect]
     Dosage: 20 UG, QD
     Route: 065
  11. PRILOSEC [Concomitant]
     Indication: GASTROOESOPHAGEAL REFLUX DISEASE
  12. ACTONEL [Concomitant]
  13. LISINOPRIL [Concomitant]
  14. NIASPAN [Concomitant]
  15. VITAMIN D [Concomitant]
  16. ATENOLOL [Concomitant]

REACTIONS (12)
  - BONE DENSITY DECREASED [None]
  - ARTERIOSCLEROSIS CORONARY ARTERY [None]
  - BREAST CANCER [None]
  - WEIGHT DECREASED [None]
  - DYSPEPSIA [None]
  - DYSPHAGIA [None]
  - DYSGEUSIA [None]
  - DECREASED APPETITE [None]
  - GASTROOESOPHAGEAL REFLUX DISEASE [None]
  - ABDOMINAL DISCOMFORT [None]
  - PAIN [None]
  - DIARRHOEA [None]
